FAERS Safety Report 4459192-0 (Version None)
Quarter: 2004Q3

REPORT INFORMATION
  Report Type: 
  Country: None (occurrence: None)
  Receive Date: 20040920
  Receipt Date: 20040920
  Transmission Date: 20050211
  Serious: Yes (Other)
  Sender: FDA-Public Use
  Company Number: None

PATIENT
  Sex: Female
  Weight: 108.8633 kg

DRUGS (2)
  1. TYLENOL W/ CODEINE NO. 3 [Suspect]
     Indication: POST PROCEDURAL PAIN
     Dosage: 2 TABS ONE TIME ORAL
     Route: 048
     Dates: start: 20040902, end: 20040902
  2. ZOFRAN ODT [Suspect]
     Indication: POST PROCEDURAL NAUSEA
     Dosage: 4 MG ONE TIME ORAL
     Route: 048

REACTIONS (1)
  - ERYTHEMA [None]
